FAERS Safety Report 18672328 (Version 1)
Quarter: 2020Q4

REPORT INFORMATION
  Report Type: Spontaneous
  Country: GB (occurrence: GB)
  Receive Date: 20201229
  Receipt Date: 20201229
  Transmission Date: 20210114
  Serious: Yes (Congenital Anomaly)
  Sender: FDA-Public Use
  Company Number: GB-TEVA-2020-GB-1862376

PATIENT
  Sex: Female

DRUGS (1)
  1. ONDANSETRON [Suspect]
     Active Substance: ONDANSETRON
     Indication: HYPEREMESIS GRAVIDARUM
     Dosage: I CAN^T REMEMBER EXACTLY BUT AT LEAST ONE TABLET A DAY., 1 DF
     Route: 064
     Dates: start: 201004

REACTIONS (2)
  - Tooth demineralisation [Unknown]
  - Foetal exposure during pregnancy [Unknown]
